FAERS Safety Report 24311808 (Version 2)
Quarter: 2024Q4

REPORT INFORMATION
  Report Type: Report from Study
  Country: US (occurrence: US)
  Receive Date: 20240912
  Receipt Date: 20241119
  Transmission Date: 20250114
  Serious: Yes (Hospitalization)
  Sender: NOVARTIS
  Company Number: US-002147023-NVSC2024US181913

PATIENT
  Sex: Female

DRUGS (1)
  1. KESIMPTA [Suspect]
     Active Substance: OFATUMUMAB
     Indication: Relapsing multiple sclerosis
     Dosage: UNK
     Route: 065

REACTIONS (2)
  - Chills [Unknown]
  - Myalgia [Unknown]
